FAERS Safety Report 5240050-9 (Version None)
Quarter: 2007Q1

REPORT INFORMATION
  Report Type: 
  Country: None (occurrence: None)
  Receive Date: 20070216
  Receipt Date: 20070205
  Transmission Date: 20070707
  Serious: Yes (Hospitalization, Other)
  Sender: FDA-Public Use
  Company Number: DE-PFIZER INC-2007009667

PATIENT
  Age: 56 Year
  Sex: Male

DRUGS (3)
  1. ZYVOX [Suspect]
     Indication: ENDOCARDITIS STAPHYLOCOCCAL
     Dates: start: 20060501, end: 20060901
  2. BELOC ZOK [Concomitant]
  3. HEPARIN [Concomitant]
     Route: 058

REACTIONS (4)
  - ARRHYTHMIA [None]
  - ATRIAL FIBRILLATION [None]
  - DECUBITUS ULCER [None]
  - HAEMOGLOBIN DECREASED [None]
